FAERS Safety Report 18954860 (Version 4)
Quarter: 2022Q1

REPORT INFORMATION
  Report Type: Spontaneous
  Country: JP (occurrence: JP)
  Receive Date: 20210301
  Receipt Date: 20220108
  Transmission Date: 20220423
  Serious: Yes (Death, Hospitalization, Other)
  Sender: FDA-Public Use
  Company Number: JP-JNJFOC-A-CH2020-204108

PATIENT
  Age: 43 Year
  Sex: Female
  Weight: 83.6 kg

DRUGS (5)
  1. EPOPROSTENOL SODIUM [Suspect]
     Active Substance: EPOPROSTENOL SODIUM
     Indication: Portopulmonary hypertension
     Route: 041
  2. EPOPROSTENOL SODIUM [Suspect]
     Active Substance: EPOPROSTENOL SODIUM
     Indication: Pulmonary arterial hypertension
     Dosage: 1.34 NG/KG, PER MIN
     Route: 041
  3. EPOPROSTENOL SODIUM [Suspect]
     Active Substance: EPOPROSTENOL SODIUM
     Route: 041
  4. EPOPROSTENOL SODIUM [Suspect]
     Active Substance: EPOPROSTENOL SODIUM
     Route: 041
  5. OPSUMIT [Suspect]
     Active Substance: MACITENTAN
     Indication: Portopulmonary hypertension
     Route: 048

REACTIONS (14)
  - Multiple organ dysfunction syndrome [Fatal]
  - Acidosis [Fatal]
  - Disseminated intravascular coagulation [Fatal]
  - Respiratory failure [Unknown]
  - Pulmonary congestion [Unknown]
  - Hypoxia [Unknown]
  - Hepatic encephalopathy [Unknown]
  - Hepatic failure [Unknown]
  - Blood pressure systolic decreased [Unknown]
  - Sepsis [Unknown]
  - Right ventricular failure [Unknown]
  - Pancreatitis [Unknown]
  - Headache [Not Recovered/Not Resolved]
  - Diarrhoea [Not Recovered/Not Resolved]
